FAERS Safety Report 10163025 (Version 2)
Quarter: 2014Q2

REPORT INFORMATION
  Report Type: Spontaneous
  Country: US (occurrence: US)
  Receive Date: 20140509
  Receipt Date: 20140606
  Transmission Date: 20141212
  Serious: No
  Sender: FDA-Public Use
  Company Number: US-PFIZER INC-2014123776

PATIENT
  Age: 69 Year
  Sex: Male

DRUGS (3)
  1. SUTENT [Suspect]
     Indication: RENAL CANCER
     Dosage: 50 MG, UNK
     Dates: start: 20140415
  2. FINASTERIDE [Concomitant]
     Dosage: UNK
  3. TAMOXIFEN CITRATE [Concomitant]
     Dosage: UNK

REACTIONS (1)
  - Anxiety [Unknown]
